FAERS Safety Report 18480205 (Version 1)
Quarter: 2020Q4

REPORT INFORMATION
  Report Type: Spontaneous
  Country: CA (occurrence: CA)
  Receive Date: 20201109
  Receipt Date: 20201109
  Transmission Date: 20210114
  Serious: Yes (Hospitalization, Other)
  Sender: FDA-Public Use
  Company Number: CA-GLAXOSMITHKLINE-CA2020GSK221850

PATIENT
  Sex: Male

DRUGS (1)
  1. AVANDIA [Suspect]
     Active Substance: ROSIGLITAZONE MALEATE
     Indication: DIABETES MELLITUS
     Dosage: UNK
     Route: 048

REACTIONS (7)
  - Coronary artery disease [Unknown]
  - Angioplasty [Unknown]
  - Myocardial infarction [Unknown]
  - Catheterisation cardiac [Unknown]
  - Coronary arterial stent insertion [Unknown]
  - Cardiac ventriculogram left [Unknown]
  - Angina unstable [Unknown]
